FAERS Safety Report 16615126 (Version 2)
Quarter: 2019Q3

REPORT INFORMATION
  Report Type: Spontaneous
  Country: US (occurrence: US)
  Receive Date: 20190723
  Receipt Date: 20190801
  Transmission Date: 20191004
  Serious: Yes (Other)
  Sender: FDA-Public Use
  Company Number: US-PFIZER INC-2019314198

PATIENT
  Age: 64 Year
  Sex: Female
  Weight: 95 kg

DRUGS (5)
  1. ELIQUIS [Suspect]
     Active Substance: APIXABAN
     Indication: CEREBROVASCULAR ACCIDENT PROPHYLAXIS
     Dosage: 5 MILLIGRAM, BID
     Route: 048
     Dates: start: 2014
  2. ATORVASTATIN [Concomitant]
     Active Substance: ATORVASTATIN
     Dosage: UNK
     Route: 065
  3. GLIPIZIDE. [Concomitant]
     Active Substance: GLIPIZIDE
     Dosage: UNK
     Route: 065
  4. METOPROLOL TARTRATE. [Suspect]
     Active Substance: METOPROLOL TARTRATE
     Dosage: UNK
     Route: 065
  5. ATIVAN [Suspect]
     Active Substance: LORAZEPAM
     Dosage: UNK
     Route: 065

REACTIONS (15)
  - Poor quality sleep [Unknown]
  - Atrial flutter [Unknown]
  - Dyspnoea [Unknown]
  - Sinusitis [Unknown]
  - Atrial fibrillation [Unknown]
  - Bladder disorder [Unknown]
  - Urinary tract infection [Unknown]
  - Cough [Unknown]
  - Hypoacusis [Unknown]
  - Ear discomfort [Unknown]
  - Fungal infection [Unknown]
  - Malaise [Unknown]
  - Rhinorrhoea [Unknown]
  - Dizziness [Unknown]
  - Obstructive airways disorder [Unknown]

NARRATIVE: CASE EVENT DATE: 2019
